FAERS Safety Report 7194304-X (Version None)
Quarter: 2010Q4

REPORT INFORMATION
  Report Type: 
  Country: None (occurrence: None)
  Receive Date: 20101223
  Receipt Date: 20101214
  Transmission Date: 20110411
  Serious: Yes (Hospitalization)
  Sender: FDA-Public Use
  Company Number: JP-ASTRAZENECA-2009SE06968

PATIENT
  Age: 28329 Day
  Sex: Male
  Weight: 53 kg

DRUGS (26)
  1. PLACEBO [Suspect]
     Indication: PROSTATE CANCER
     Dosage: DAILY
     Route: 048
     Dates: start: 20090420, end: 20090807
  2. PLACEBO [Suspect]
     Dosage: DAILY
     Route: 048
     Dates: start: 20100222, end: 20101130
  3. ZOLADEX [Suspect]
     Indication: PROSTATE CANCER
     Route: 058
     Dates: start: 20051101
  4. PREDONINE [Suspect]
     Indication: PROSTATE CANCER
     Route: 048
     Dates: start: 20090714
  5. OMEPRAL TABLETS [Concomitant]
     Indication: GASTRITIS ATROPHIC
     Route: 048
     Dates: start: 20080401
  6. OMEPRAL TABLETS [Concomitant]
     Indication: REFLUX OESOPHAGITIS
     Route: 048
     Dates: start: 20080401
  7. OMEPRAL TABLETS [Concomitant]
     Route: 048
     Dates: start: 20090801
  8. OMEPRAL TABLETS [Concomitant]
     Route: 048
     Dates: start: 20090801
  9. VOLTAREN [Concomitant]
     Indication: LUMBAR SPINAL STENOSIS
     Dosage: OPTIMAL DOSE, AS REQUIRED
     Route: 003
     Dates: start: 20061208
  10. MICARDIS [Concomitant]
     Indication: HYPERTENSION
     Route: 048
     Dates: start: 20080401, end: 20090812
  11. ADALAT CC [Concomitant]
     Indication: HYPERTENSION
     Route: 048
     Dates: start: 20080701
  12. URIEF [Concomitant]
     Indication: BENIGN PROSTATIC HYPERPLASIA
     Route: 048
     Dates: start: 20080701
  13. STROCAIN [Concomitant]
     Indication: GASTRITIS ATROPHIC
     Route: 048
     Dates: start: 20080701, end: 20090726
  14. COLIOPAN [Concomitant]
     Indication: GASTRITIS ATROPHIC
     Route: 048
     Dates: start: 20080701
  15. OFLOXACIN [Concomitant]
     Indication: CONJUNCTIVITIS ALLERGIC
     Dosage: OPTIMAL DOSE DAILY
     Route: 047
     Dates: start: 20080801
  16. EYEVINAL [Concomitant]
     Indication: CONJUNCTIVITIS ALLERGIC
     Dosage: OPTIMAL DOSE THREE TIMES A DAY
     Route: 047
     Dates: start: 20080801
  17. FLUMETHOLON [Concomitant]
     Indication: CONJUNCTIVITIS ALLERGIC
     Dosage: OPTIMAL DOSE THREE TIMES A DAY
     Route: 047
     Dates: start: 20080801
  18. ALLOID G [Concomitant]
     Indication: GASTRITIS ATROPHIC
     Route: 048
     Dates: start: 20080901
  19. PROCYLIN [Concomitant]
     Indication: LUMBAR SPINAL STENOSIS
     Route: 048
     Dates: start: 20090414
  20. MOBIC [Concomitant]
     Indication: SPINAL OSTEOARTHRITIS
     Route: 048
     Dates: start: 20090414
  21. LUPRAC [Concomitant]
     Indication: CARDIAC FAILURE
     Route: 048
     Dates: start: 20090605
  22. SELARA [Concomitant]
     Indication: HYPERTENSION
     Route: 048
     Dates: start: 20090703
  23. ASPIRIN [Concomitant]
     Route: 048
     Dates: start: 20090727
  24. DIOVAN [Concomitant]
     Route: 048
     Dates: start: 20090728
  25. LORCAM [Concomitant]
     Indication: LUMBAR SPINAL STENOSIS
     Route: 048
     Dates: start: 20100315
  26. KARY UNI [Concomitant]
     Indication: CATARACT
     Dosage: OPTIMAL DOSE/3-5 DF/DOSE
     Route: 048
     Dates: start: 20100618

REACTIONS (3)
  - ABDOMINAL PAIN UPPER [None]
  - MYOCARDIAL INFARCTION [None]
  - PRINZMETAL ANGINA [None]
